FAERS Safety Report 4635667-6 (Version None)
Quarter: 2005Q2

REPORT INFORMATION
  Report Type: 
  Country: None (occurrence: None)
  Receive Date: 20050413
  Receipt Date: 20050331
  Transmission Date: 20051028
  Serious: Yes (Other)
  Sender: FDA-Public Use
  Company Number: 2005052551

PATIENT
  Age: 35 Year
  Sex: Male

DRUGS (1)
  1. VIAGRA [Suspect]
     Indication: ILL-DEFINED DISORDER

REACTIONS (4)
  - MUSCLE DISORDER [None]
  - NIGHT BLINDNESS [None]
  - VISION BLURRED [None]
  - VISUAL ACUITY REDUCED [None]
